FAERS Safety Report 5058152-9 (Version None)
Quarter: 2006Q3

REPORT INFORMATION
  Report Type: 
  Country: None (occurrence: None)
  Receive Date: 20060721
  Receipt Date: 20060418
  Transmission Date: 20061208
  Serious: Yes (Hospitalization)
  Sender: FDA-Public Use
  Company Number: MX-MERCK-0604MEX00016

PATIENT
  Age: 14 Year
  Sex: Female

DRUGS (3)
  1. CORTICOSTEROIDS (UNSPECIFIED) [Concomitant]
     Indication: ALLERGIC GRANULOMATOUS ANGIITIS
     Route: 055
  2. CORTICOSTEROIDS (UNSPECIFIED) [Concomitant]
     Route: 048
  3. SINGULAIR [Suspect]
     Indication: ASTHMA
     Route: 065

REACTIONS (1)
  - ALLERGIC GRANULOMATOUS ANGIITIS [None]
